FAERS Safety Report 8591635-3 (Version None)
Quarter: 2012Q3

REPORT INFORMATION
  Report Type: 
  Country: None (occurrence: None)
  Receive Date: 20120814
  Receipt Date: 20120808
  Transmission Date: 20120928
  Serious: Yes (Death, Life-Threatening, Congenital Anomaly)
  Sender: FDA-Public Use
  Company Number: RU-ABBOTT-12P-251-0948604-00

PATIENT

DRUGS (1)
  1. KALETRA [Suspect]
     Indication: MATERNAL EXPOSURE TIMING UNSPECIFIED
     Route: 064

REACTIONS (8)
  - CEREBRAL ATROPHY [None]
  - CONGENITAL HYDROCEPHALUS [None]
  - ATELECTASIS NEONATAL [None]
  - NEONATAL RESPIRATORY DISTRESS SYNDROME [None]
  - FOETAL EXPOSURE DURING PREGNANCY [None]
  - PREMATURE BABY [None]
  - RESPIRATORY FAILURE [None]
  - CEREBELLAR HYPOPLASIA [None]
